FAERS Safety Report 12683074 (Version 2)
Quarter: 2016Q3

REPORT INFORMATION
  Report Type: Spontaneous
  Country: US (occurrence: US)
  Receive Date: 20160825
  Receipt Date: 20160829
  Transmission Date: 20161109
  Serious: No
  Sender: FDA-Public Use
  Company Number: US-BAYER-2016-164934

PATIENT
  Age: 76 Year
  Sex: Female
  Weight: 72.56 kg

DRUGS (1)
  1. MIRALAX [Suspect]
     Active Substance: POLYETHYLENE GLYCOL 3350
     Indication: GASTROINTESTINAL MOTILITY DISORDER
     Dosage: UNK UNK, BIW
     Route: 048

REACTIONS (4)
  - Product solubility abnormal [None]
  - Circumstance or information capable of leading to medication error [None]
  - Expired product administered [None]
  - Poor quality drug administered [None]

NARRATIVE: CASE EVENT DATE: 2016
